FAERS Safety Report 10174705 (Version 1)
Quarter: 2014Q2

REPORT INFORMATION
  Report Type: Spontaneous
  Country: US (occurrence: US)
  Receive Date: 20140515
  Receipt Date: 20140515
  Transmission Date: 20141212
  Serious: Yes (Hospitalization, Other)
  Sender: FDA-Public Use
  Company Number: US-BAYER-2014-067494

PATIENT
  Sex: Female

DRUGS (1)
  1. BETASERON [Suspect]

REACTIONS (9)
  - Multiple sclerosis relapse [None]
  - Fibromyalgia [None]
  - Bacterial infection [None]
  - Gastric banding [None]
  - Intentional product misuse [None]
  - Influenza like illness [None]
  - Liver function test abnormal [None]
  - Hepatomegaly [None]
  - Hepatic steatosis [None]
